FAERS Safety Report 14594651 (Version 1)
Quarter: 2018Q1

REPORT INFORMATION
  Report Type: Spontaneous
  Country: US (occurrence: US)
  Receive Date: 20180302
  Receipt Date: 20180302
  Transmission Date: 20180509
  Serious: No
  Sender: FDA-Public Use
  Company Number: US-MATRIXX INITIATIVES, INC.-2042884

PATIENT
  Age: 15 Year
  Sex: Female
  Weight: 52.27 kg

DRUGS (1)
  1. ZICAM COLD REMEDY RAPIDMELTS [Suspect]
     Active Substance: HOMEOPATHICS\ZINC ACETATE ANHYDROUS\ZINC GLUCONATE
     Indication: NASOPHARYNGITIS
     Route: 048
     Dates: start: 20180206, end: 20180209

REACTIONS (2)
  - Anosmia [Recovered/Resolved]
  - Ageusia [Recovered/Resolved]
